FAERS Safety Report 5939955-2 (Version None)
Quarter: 2008Q4

REPORT INFORMATION
  Report Type: 
  Country: None (occurrence: None)
  Receive Date: 20081031
  Receipt Date: 20081031
  Transmission Date: 20090506
  Serious: No
  Sender: FDA-Public Use
  Company Number: None

PATIENT
  Age: 33 Year
  Sex: Male

DRUGS (1)
  1. ESKALITH [Suspect]
     Dosage: PO
     Route: 048
     Dates: start: 20081010

REACTIONS (3)
  - MOVEMENT DISORDER [None]
  - MUSCLE TIGHTNESS [None]
  - TREMOR [None]
